FAERS Safety Report 6669832-3 (Version None)
Quarter: 2010Q2

REPORT INFORMATION
  Report Type: 
  Country: None (occurrence: None)
  Receive Date: 20100406
  Receipt Date: 20100113
  Transmission Date: 20101027
  Serious: No
  Sender: FDA-Public Use
  Company Number: US-ALLERGAN-0906017US

PATIENT
  Age: 59 Year
  Sex: Female

DRUGS (4)
  1. LATISSE [Suspect]
     Indication: HYPOTRICHOSIS
     Dosage: 1 GTT, QHS
     Route: 061
     Dates: start: 20090401, end: 20090401
  2. LATISSE [Suspect]
     Dosage: 1 GTT, QHS
     Route: 061
     Dates: start: 20090401
  3. MAKE UP REMOVER [Concomitant]
     Indication: EYE DISORDER
  4. OPTICON A [Concomitant]
     Dosage: ON OCCASSION

REACTIONS (4)
  - DRUG ADMINISTERED AT INAPPROPRIATE SITE [None]
  - EYE IRRITATION [None]
  - MADAROSIS [None]
  - OCULAR HYPERAEMIA [None]
